FAERS Safety Report 4316141-3 (Version None)
Quarter: 2004Q1

REPORT INFORMATION
  Report Type: 
  Country: None (occurrence: None)
  Receive Date: 20040310
  Receipt Date: 20040302
  Transmission Date: 20041129
  Serious: Yes (Life-Threatening)
  Sender: FDA-Public Use
  Company Number: 2003-109530-NL

PATIENT
  Age: 45 Year
  Sex: Female

DRUGS (4)
  1. ROCURONIUM BROMIDE [Suspect]
     Dosage: 30 MG
     Route: 042
     Dates: start: 20030922
  2. PROPOFOL [Concomitant]
  3. FENTANYL [Concomitant]
  4. LIDOCAINE [Concomitant]

REACTIONS (1)
  - ANAPHYLACTIC SHOCK [None]
